FAERS Safety Report 5015126-1 (Version None)
Quarter: 2006Q2

REPORT INFORMATION
  Report Type: 
  Country: None (occurrence: None)
  Receive Date: 20060414
  Receipt Date: 20060131
  Transmission Date: 20061013
  Serious: No
  Sender: FDA-Public Use
  Company Number: 2005SP001475

PATIENT
  Age: 60 Year
  Sex: Female
  Weight: 52.1637 kg

DRUGS (4)
  1. LUNESTA [Suspect]
     Indication: INSOMNIA
     Dosage: 0.5 MG;HS;ORAL   : 1 MG;HS;ORAL
     Route: 048
     Dates: start: 20050501, end: 20050501
  2. LUNESTA [Suspect]
     Indication: INSOMNIA
     Dosage: 0.5 MG;HS;ORAL   : 1 MG;HS;ORAL
     Route: 048
     Dates: start: 20050501, end: 20050501
  3. CRESTOR [Concomitant]
  4. FEMHRT [Concomitant]

REACTIONS (4)
  - CONTUSION [None]
  - DIZZINESS [None]
  - INSOMNIA [None]
  - PAIN IN EXTREMITY [None]
